FAERS Safety Report 24018497 (Version 1)
Quarter: 2024Q2

REPORT INFORMATION
  Report Type: Spontaneous
  Country: US (occurrence: US)
  Receive Date: 20240627
  Receipt Date: 20240627
  Transmission Date: 20240716
  Serious: Yes (Other)
  Sender: FDA-Public Use
  Company Number: US-TEVA-VS-3213161

PATIENT
  Age: 69 Year
  Sex: Male
  Weight: 90.72 kg

DRUGS (3)
  1. GLIPIZIDE [Suspect]
     Active Substance: GLIPIZIDE
     Route: 065
     Dates: end: 2024
  2. GLIPIZIDE [Suspect]
     Active Substance: GLIPIZIDE
     Route: 065
     Dates: start: 2024, end: 2024
  3. OXYCODONE [Concomitant]
     Active Substance: OXYCODONE\OXYCODONE HYDROCHLORIDE

REACTIONS (6)
  - Knee arthroplasty [Recovering/Resolving]
  - Eating disorder [Unknown]
  - Arthralgia [Recovering/Resolving]
  - Myalgia [Unknown]
  - Inflammation [Recovering/Resolving]
  - Femur fracture [Unknown]

NARRATIVE: CASE EVENT DATE: 20230701
